FAERS Safety Report 21519514 (Version 1)
Quarter: 2022Q4

REPORT INFORMATION
  Report Type: Spontaneous
  Country: US (occurrence: US)
  Receive Date: 20221028
  Receipt Date: 20221028
  Transmission Date: 20230113
  Serious: No
  Sender: FDA-Public Use
  Company Number: US-BRISTOL-MYERS SQUIBB COMPANY-2022-128693

PATIENT
  Age: 44 Year
  Sex: Female
  Weight: 92.986 kg

DRUGS (5)
  1. OPDIVO [Suspect]
     Active Substance: NIVOLUMAB
     Indication: Connective tissue neoplasm
     Dosage: DOSE : OPDIVO 265MG|YERVOY 88MG;     FREQ : EVERY 3 WEEKS|EVERY 3 WEEKS
     Route: 042
     Dates: start: 20220711
  2. YERVOY [Suspect]
     Active Substance: IPILIMUMAB
     Indication: Connective tissue neoplasm
     Route: 042
  3. PAZOPANIB [Concomitant]
     Active Substance: PAZOPANIB
     Indication: Product used for unknown indication
     Route: 065
  4. PIROXICAM [Concomitant]
     Active Substance: PIROXICAM
     Indication: Product used for unknown indication
     Route: 065
  5. IBUPROFEN [Concomitant]
     Active Substance: IBUPROFEN
     Indication: Product used for unknown indication
     Route: 065

REACTIONS (3)
  - Weight increased [Unknown]
  - Product use in unapproved indication [Unknown]
  - Intentional product use issue [Unknown]

NARRATIVE: CASE EVENT DATE: 20220101
